FAERS Safety Report 22213626 (Version 1)
Quarter: 2023Q2

REPORT INFORMATION
  Report Type: Spontaneous
  Country: CA (occurrence: CA)
  Receive Date: 20230414
  Receipt Date: 20230414
  Transmission Date: 20230722
  Serious: Yes (Hospitalization, Other)
  Sender: FDA-Public Use
  Company Number: CA-BAYER-2023A046731

PATIENT
  Age: 30 Year
  Sex: Female

DRUGS (5)
  1. YASMIN [Suspect]
     Active Substance: DROSPIRENONE\ETHINYL ESTRADIOL
     Dosage: UNK
     Dates: start: 20120507
  2. COUMADIN [Concomitant]
     Active Substance: WARFARIN SODIUM
  3. RIVAROXABAN [Concomitant]
     Active Substance: RIVAROXABAN
  4. TINZAPARIN [Concomitant]
     Active Substance: TINZAPARIN
  5. FUROSEMIDE [Concomitant]
     Active Substance: FUROSEMIDE

REACTIONS (4)
  - Pulmonary embolism [None]
  - Deep vein thrombosis [None]
  - Pain in extremity [Recovered/Resolved]
  - Anaphylactic reaction [None]

NARRATIVE: CASE EVENT DATE: 20120525
